FAERS Safety Report 20563022 (Version 1)
Quarter: 2022Q1

REPORT INFORMATION
  Report Type: Report from Study
  Country: CA (occurrence: CA)
  Receive Date: 20220307
  Receipt Date: 20220307
  Transmission Date: 20220423
  Serious: Yes (Other)
  Sender: FDA-Public Use
  Company Number: CA-ABBVIE-22K-028-4301784-00

PATIENT
  Sex: Male

DRUGS (4)
  1. LUPRON DEPOT [Suspect]
     Active Substance: LEUPROLIDE ACETATE
     Indication: Prostate cancer
     Route: 030
     Dates: start: 20201203
  2. COVID-19 VACCINE [Concomitant]
     Indication: COVID-19 immunisation
     Dates: start: 2021, end: 2021
  3. COVID-19 VACCINE [Concomitant]
     Dates: start: 2021, end: 2021
  4. COVID-19 VACCINE [Concomitant]
     Dates: start: 202112, end: 202112

REACTIONS (1)
  - Cataract [Unknown]
